FAERS Safety Report 4370725-5 (Version None)
Quarter: 2004Q2

REPORT INFORMATION
  Report Type: 
  Country: None (occurrence: None)
  Receive Date: 20040602
  Receipt Date: 20040602
  Transmission Date: 20050107
  Serious: No
  Sender: FDA-Public Use
  Company Number: None

PATIENT
  Sex: Male

DRUGS (11)
  1. OXCARBAZEPINE [Suspect]
     Indication: AFFECTIVE DISORDER
     Dosage: 1800 MG DAILY ORAL
     Route: 048
     Dates: start: 20040419, end: 20040519
  2. CLONAZEPAM [Concomitant]
  3. COMBIVIR [Concomitant]
  4. FLUCONAZOLE [Concomitant]
  5. VIRAMMUNE [Concomitant]
  6. LEVOTHYROXINE SODIUM [Concomitant]
  7. AZITHROMYCIN [Concomitant]
  8. HALOPERIDOL [Concomitant]
  9. BACTRIM [Concomitant]
  10. OLANZAPINE [Concomitant]
  11. PANTOPRAZOLE [Concomitant]

REACTIONS (1)
  - HYPONATRAEMIA [None]
